FAERS Safety Report 4636574-5 (Version None)
Quarter: 2005Q2

REPORT INFORMATION
  Report Type: 
  Country: None (occurrence: None)
  Receive Date: 20050325
  Receipt Date: 20050113
  Transmission Date: 20051028
  Serious: No
  Sender: FDA-Public Use
  Company Number: USA040464796

PATIENT
  Age: 56 Year
  Sex: Female

DRUGS (4)
  1. FORTEO [Suspect]
     Indication: OSTEOPOROSIS
     Dosage: 20 UG DAY
     Dates: start: 20040312
  2. LOTREL [Concomitant]
  3. PREMPRO (PREMARIN;CYCRIN 14/14) [Concomitant]
  4. VITAMINS [Concomitant]

REACTIONS (3)
  - CATARACT OPERATION COMPLICATION [None]
  - SWELLING [None]
  - VISUAL DISTURBANCE [None]
